FAERS Safety Report 10785915 (Version 1)
Quarter: 2015Q1

REPORT INFORMATION
  Report Type: Spontaneous
  Country: US (occurrence: None)
  Receive Date: 20150210
  Receipt Date: 20150210
  Transmission Date: 20150721
  Serious: Yes (Hospitalization)
  Sender: FDA-Public Use
  Company Number: None

PATIENT
  Age: 85 Year
  Sex: Female
  Weight: 27.67 kg

DRUGS (4)
  1. WARFARIN 2 MG [Suspect]
     Active Substance: WARFARIN
     Indication: DEEP VEIN THROMBOSIS
     Dosage: 1 TABLET QHS/BEDTIME
     Route: 048
     Dates: start: 20150118, end: 20150129
  2. ASPIRIN. [Concomitant]
     Active Substance: ASPIRIN
  3. CEFTAROLINE [Concomitant]
     Active Substance: CEFTAROLINE
  4. GABAPENTIN. [Concomitant]
     Active Substance: GABAPENTIN

REACTIONS (2)
  - Gastrointestinal haemorrhage [None]
  - Dieulafoy^s vascular malformation [None]

NARRATIVE: CASE EVENT DATE: 20150130
